FAERS Safety Report 12165871 (Version 3)
Quarter: 2016Q2

REPORT INFORMATION
  Report Type: Report from Study
  Country: CA (occurrence: CA)
  Receive Date: 20160309
  Receipt Date: 20160506
  Transmission Date: 20160815
  Serious: Yes (Death, Hospitalization, Other)
  Sender: FDA-Public Use
  Company Number: CA-ABBVIE-16K-028-1577406-00

PATIENT
  Age: 54 Year
  Sex: Male
  Weight: 90 kg

DRUGS (1)
  1. HUMIRA [Suspect]
     Active Substance: ADALIMUMAB
     Indication: CROHN^S DISEASE
     Route: 058
     Dates: start: 20140920, end: 2015

REACTIONS (6)
  - Clostridium difficile colitis [Fatal]
  - Megacolon [Fatal]
  - Colitis [Unknown]
  - Crohn^s disease [Unknown]
  - Septic shock [Fatal]
  - Frequent bowel movements [Unknown]

NARRATIVE: CASE EVENT DATE: 2015
